FAERS Safety Report 23315383 (Version 1)
Quarter: 2023Q4

REPORT INFORMATION
  Report Type: Spontaneous
  Country: US (occurrence: US)
  Receive Date: 20231219
  Receipt Date: 20231219
  Transmission Date: 20240110
  Serious: No
  Sender: FDA-Public Use
  Company Number: US-ORG100016242-2022002959

PATIENT
  Age: 74 Year
  Sex: Female

DRUGS (1)
  1. EXPAREL [Suspect]
     Active Substance: BUPIVACAINE
     Indication: Nerve block
     Dosage: NOT PROVIDED
     Dates: start: 20221227, end: 20221227

REACTIONS (3)
  - Paraesthesia [Not Recovered/Not Resolved]
  - Hypoaesthesia [Not Recovered/Not Resolved]
  - Monoparesis [Not Recovered/Not Resolved]

NARRATIVE: CASE EVENT DATE: 20221227
